FAERS Safety Report 7660841-4 (Version None)
Quarter: 2011Q3

REPORT INFORMATION
  Report Type: 
  Country: None (occurrence: None)
  Receive Date: 20110805
  Receipt Date: 20101110
  Transmission Date: 20111222
  Serious: No
  Sender: FDA-Public Use
  Company Number: US-ABBOTT-10P-163-0684443-00

PATIENT
  Sex: Male
  Weight: 103.51 kg

DRUGS (4)
  1. LOPRESSOR [Suspect]
     Indication: CARDIAC DISORDER
     Route: 048
     Dates: start: 20101108
  2. LIPITOR [Concomitant]
     Indication: PRODUCT USED FOR UNKNOWN INDICATION
  3. ASPIRIN [Concomitant]
     Indication: PRODUCT USED FOR UNKNOWN INDICATION
  4. NIASPAN [Suspect]
     Indication: BLOOD CHOLESTEROL
     Dates: start: 20101108

REACTIONS (4)
  - VISION BLURRED [None]
  - VERTIGO [None]
  - FLUSHING [None]
  - ANXIETY [None]
